FAERS Safety Report 14295362 (Version 4)
Quarter: 2018Q2

REPORT INFORMATION
  Report Type: Spontaneous
  Country: US (occurrence: US)
  Receive Date: 20171218
  Receipt Date: 20180504
  Transmission Date: 20180711
  Serious: No
  Sender: FDA-Public Use
  Company Number: US-PFIZER INC-2017534842

PATIENT
  Age: 49 Year
  Sex: Female
  Weight: 127 kg

DRUGS (5)
  1. METHOTREXATE. [Concomitant]
     Active Substance: METHOTREXATE
     Indication: RHEUMATOID ARTHRITIS
     Dosage: UNK
  2. HIZENTRA [Concomitant]
     Active Substance: HUMAN IMMUNOGLOBULIN G
     Indication: ANAEMIA
     Dosage: SUB-Q INFUSION, ONCE A WEEK, I TAKE 12 GM
     Route: 058
  3. METOPROLOL. [Concomitant]
     Active Substance: METOPROLOL
     Indication: HYPERTENSION
     Dosage: 50 MG, 2X/DAY
  4. XELJANZ [Suspect]
     Active Substance: TOFACITINIB CITRATE
     Indication: RHEUMATOID ARTHRITIS
     Dosage: 5 MG, 1X/DAY
     Dates: start: 20170929
  5. XELJANZ [Suspect]
     Active Substance: TOFACITINIB CITRATE
     Dosage: 5 MG, DAILY

REACTIONS (4)
  - Vomiting projectile [Unknown]
  - Ear infection [Recovering/Resolving]
  - Product use issue [Unknown]
  - Sinusitis [Recovering/Resolving]

NARRATIVE: CASE EVENT DATE: 20170929
